FAERS Safety Report 7660036-4 (Version None)
Quarter: 2011Q3

REPORT INFORMATION
  Report Type: 
  Country: None (occurrence: None)
  Receive Date: 20110805
  Receipt Date: 20110728
  Transmission Date: 20111222
  Serious: Yes (Hospitalization)
  Sender: FDA-Public Use
  Company Number: JP-ABBOTT-11P-087-0836207-00

PATIENT
  Sex: Female
  Weight: 46.5 kg

DRUGS (12)
  1. DALACIN T [Concomitant]
     Indication: ACNE
     Dates: start: 20091201
  2. HUMIRA [Suspect]
     Route: 058
     Dates: start: 20100608, end: 20100621
  3. PREDNISOLONE [Concomitant]
     Indication: COLITIS ULCERATIVE
     Route: 048
     Dates: start: 20110606, end: 20110722
  4. BIO-THREE [Concomitant]
     Indication: BOWEL MOVEMENT IRREGULARITY
     Route: 048
     Dates: start: 20080623
  5. DIFFERIN [Concomitant]
     Indication: ACNE
     Dates: start: 20091201
  6. LANSOPRAZOLE [Concomitant]
     Indication: GASTRITIS PROPHYLAXIS
     Route: 048
     Dates: start: 20071126, end: 20110722
  7. ACETAMINOPHEN [Concomitant]
     Indication: TOOTHACHE
     Route: 048
     Dates: start: 20110509
  8. HUMIRA [Suspect]
     Indication: COLITIS ULCERATIVE
     Route: 058
     Dates: start: 20100315, end: 20100525
  9. HUMIRA [Suspect]
     Route: 058
     Dates: start: 20100706
  10. PENTASA [Concomitant]
     Indication: COLITIS ULCERATIVE
     Route: 048
     Dates: start: 20090511
  11. IMURAN [Concomitant]
     Indication: COLITIS ULCERATIVE
     Route: 048
     Dates: start: 20110204
  12. ALINAMIN-F [Concomitant]
     Indication: ARTHRALGIA
     Route: 048
     Dates: start: 20080609

REACTIONS (2)
  - PYREXIA [None]
  - GASTROENTERITIS [None]
